FAERS Safety Report 15887926 (Version 1)
Quarter: 2019Q1

REPORT INFORMATION
  Report Type: Report from Study
  Country: CA (occurrence: CA)
  Receive Date: 20190130
  Receipt Date: 20190130
  Transmission Date: 20190417
  Serious: Yes (Hospitalization, Other)
  Sender: FDA-Public Use
  Company Number: CA-TOLMAR, INC.-2019CA000801

PATIENT

DRUGS (1)
  1. ELIGARD [Suspect]
     Active Substance: LEUPROLIDE ACETATE
     Indication: PROSTATE CANCER
     Dosage: 30 MG, EVERY 16 WEEKS
     Route: 058
     Dates: start: 20170710

REACTIONS (4)
  - Fall [Unknown]
  - Movement disorder [Unknown]
  - Muscular weakness [Unknown]
  - Dysstasia [Unknown]

NARRATIVE: CASE EVENT DATE: 201901
